FAERS Safety Report 5500695-5 (Version None)
Quarter: 2007Q4

REPORT INFORMATION
  Report Type: 
  Country: None (occurrence: None)
  Receive Date: 20071029
  Receipt Date: 20071017
  Transmission Date: 20080405
  Serious: Yes (Hospitalization)
  Sender: FDA-Public Use
  Company Number: US-KINGPHARMUSA00001-K200701340

PATIENT

DRUGS (10)
  1. RAMIPRIL [Suspect]
     Dosage: 2.5 MG, BID
     Route: 048
     Dates: end: 20070908
  2. LASIX [Suspect]
     Dosage: 40 MG, BID
     Route: 048
     Dates: end: 20070908
  3. ALDACTONE [Suspect]
     Dosage: 250 MG, QD
     Route: 048
     Dates: end: 20070908
  4. DITROPAN                           /00538901/ [Concomitant]
     Dosage: 5 MG, QD
     Route: 048
     Dates: end: 20070908
  5. ESCITALOPRAM [Concomitant]
     Dosage: 10 MG, QD
     Route: 048
     Dates: end: 20070908
  6. OGAST [Concomitant]
     Dosage: 30 MG, QD
     Route: 048
     Dates: end: 20070908
  7. PREVISCAN /00789001/ [Concomitant]
     Dosage: 30 MG, QD
     Route: 048
     Dates: end: 20070908
  8. LYRICA [Concomitant]
     Dosage: 300 MG, QD
     Route: 048
     Dates: end: 20070908
  9. HAVLANE [Concomitant]
     Dosage: 1 MG, QD
     Route: 048
     Dates: end: 20070908
  10. NOVOMIX  /01475801/ [Concomitant]
     Dosage: 40 IU, QD
     Route: 058
     Dates: end: 20070908

REACTIONS (5)
  - BLOOD CREATININE INCREASED [None]
  - BLOOD UREA INCREASED [None]
  - DRUG INTERACTION [None]
  - OVERDOSE [None]
  - RENAL FAILURE ACUTE [None]
